FAERS Safety Report 17870509 (Version 2)
Quarter: 2020Q3

REPORT INFORMATION
  Report Type: Spontaneous
  Country: US (occurrence: US)
  Receive Date: 20200608
  Receipt Date: 20200804
  Transmission Date: 20201103
  Serious: No
  Sender: FDA-Public Use
  Company Number: US-PFIZER INC-2020220516

PATIENT
  Age: 63 Year
  Sex: Female
  Weight: 90.72 kg

DRUGS (1)
  1. CHANTIX [Suspect]
     Active Substance: VARENICLINE TARTRATE
     Indication: SMOKING CESSATION THERAPY
     Dosage: 1 MG, 2X/DAY (10 AM AND ONE IN THE EVENING AROUND 5 PM)
     Route: 048

REACTIONS (1)
  - Therapeutic product effect incomplete [Unknown]
